FAERS Safety Report 11796048 (Version 1)
Quarter: 2015Q4

REPORT INFORMATION
  Report Type: Spontaneous
  Country: US (occurrence: None)
  Receive Date: 20151202
  Receipt Date: 20151202
  Transmission Date: 20160305
  Serious: Yes (Death)
  Sender: FDA-Public Use
  Company Number: None

PATIENT
  Age: 20 Year
  Sex: Male

DRUGS (1)
  1. POPPY SEEDS FOR TEA [Suspect]
     Active Substance: POPPY SEED

REACTIONS (5)
  - Pupil fixed [None]
  - Coma [None]
  - Foaming at mouth [None]
  - Brain death [None]
  - Incorrect dose administered [None]

NARRATIVE: CASE EVENT DATE: 20150511
